FAERS Safety Report 9400257 (Version 5)
Quarter: 2013Q3

REPORT INFORMATION
  Report Type: Spontaneous
  Country: JP (occurrence: JP)
  Receive Date: 20130715
  Receipt Date: 20130830
  Transmission Date: 20140515
  Serious: Yes (Death, Other)
  Sender: FDA-Public Use
  Company Number: JP-PFIZER INC-2013148756

PATIENT
  Age: 87 Year
  Sex: Male
  Weight: 42 kg

DRUGS (6)
  1. ZITHROMAC [Suspect]
     Indication: PNEUMONIA
     Dosage: 500 MG DAILY
     Route: 042
     Dates: start: 20130502, end: 20130510
  2. ZOSYN [Concomitant]
     Indication: PNEUMONIA
     Dosage: 4.5 G, DAILY
     Route: 042
     Dates: start: 20130502, end: 20130513
  3. TAKEPRON [Concomitant]
     Dosage: 15 MG, 1X/DAY
     Route: 048
     Dates: start: 20130501
  4. THYRADIN-S [Concomitant]
     Dosage: UNK
     Route: 048
     Dates: start: 20130430
  5. CALBLOCK [Concomitant]
     Dosage: 16 MG, 1X/DAY
     Route: 048
     Dates: start: 20130430
  6. ALOSENN [Concomitant]
     Dosage: 0.5 G, 1X/DAY
     Route: 048
     Dates: start: 20130430

REACTIONS (2)
  - Bone marrow failure [Fatal]
  - Pemphigoid [Not Recovered/Not Resolved]
